FAERS Safety Report 15306896 (Version 1)
Quarter: 2018Q3

REPORT INFORMATION
  Report Type: Spontaneous
  Country: CH (occurrence: CH)
  Receive Date: 20180822
  Receipt Date: 20180822
  Transmission Date: 20181010
  Serious: Yes (Other)
  Sender: FDA-Public Use
  Company Number: CH-MYLANLABS-2018M1062399

PATIENT
  Age: 72 Year
  Sex: Female
  Weight: 84 kg

DRUGS (3)
  1. MORPHINE [Suspect]
     Active Substance: MORPHINE
     Indication: PRODUCT USED FOR UNKNOWN INDICATION
     Route: 042
  2. MORPHINE [Suspect]
     Active Substance: MORPHINE
     Dosage: IN THE MORNING
     Route: 065
  3. MORPHINE [Suspect]
     Active Substance: MORPHINE
     Dosage: 15MG SIX TIMES A DAY
     Route: 065

REACTIONS (3)
  - Respiratory depression [Recovering/Resolving]
  - Altered state of consciousness [Recovering/Resolving]
  - Toxicity to various agents [Recovering/Resolving]
